FAERS Safety Report 9429793 (Version 1)
Quarter: 2013Q3

REPORT INFORMATION
  Report Type: Report from Study
  Country: US (occurrence: US)
  Receive Date: 20130730
  Receipt Date: 20130730
  Transmission Date: 20140515
  Serious: No
  Sender: FDA-Public Use
  Company Number: US-ABBOTT-13P-163-1046888-00

PATIENT
  Sex: Female
  Weight: 79.45 kg

DRUGS (3)
  1. NIASPAN (COATED) [Suspect]
     Indication: LIPIDS INCREASED
     Dosage: AT BEDTIME
  2. NIASPAN (COATED) [Suspect]
     Indication: FAMILIAL RISK FACTOR
  3. SYNTHROID [Concomitant]
     Indication: PRODUCT USED FOR UNKNOWN INDICATION

REACTIONS (3)
  - Flushing [Not Recovered/Not Resolved]
  - Feeling hot [Not Recovered/Not Resolved]
  - Paraesthesia [Not Recovered/Not Resolved]
